FAERS Safety Report 7508640-8 (Version None)
Quarter: 2011Q2

REPORT INFORMATION
  Report Type: 
  Country: None (occurrence: None)
  Receive Date: 20110527
  Receipt Date: 20100414
  Transmission Date: 20111010
  Serious: No
  Sender: FDA-Public Use
  Company Number: A0855031A

PATIENT
  Age: 69 Year
  Sex: Male

DRUGS (3)
  1. CLARITIN [Concomitant]
  2. NASONEX [Concomitant]
  3. VENTOLIN [Suspect]
     Dosage: 2PUFF AT NIGHT
     Route: 055
     Dates: start: 20100201

REACTIONS (1)
  - LIP SWELLING [None]
